FAERS Safety Report 7046886-6 (Version None)
Quarter: 2010Q4

REPORT INFORMATION
  Report Type: 
  Country: None (occurrence: None)
  Receive Date: 20101015
  Receipt Date: 20101003
  Transmission Date: 20110411
  Serious: Yes (Hospitalization)
  Sender: FDA-Public Use
  Company Number: PHFR2010GB04478

PATIENT
  Sex: Female

DRUGS (1)
  1. CLOZARIL [Suspect]
     Indication: SCHIZOPHRENIA
     Dosage: UNK
     Route: 048
     Dates: start: 20090721

REACTIONS (6)
  - CONFUSIONAL STATE [None]
  - DELUSION [None]
  - HEART RATE INCREASED [None]
  - HYPOTENSION [None]
  - INFECTION [None]
  - NEUROLEPTIC MALIGNANT SYNDROME [None]
